FAERS Safety Report 10739274 (Version 3)
Quarter: 2015Q1

REPORT INFORMATION
  Report Type: Spontaneous
  Country: DE (occurrence: DE)
  Receive Date: 20150126
  Receipt Date: 20150310
  Transmission Date: 20150721
  Serious: Yes (Other)
  Sender: FDA-Public Use
  Company Number: DE-ASTELLAS-2015US000824

PATIENT
  Sex: Female

DRUGS (2)
  1. MYOVIEW [Suspect]
     Active Substance: TECHNETIUM TC-99M TETROFOSMIN\TETROFOSMIN
     Indication: PRODUCT USED FOR UNKNOWN INDICATION
     Dosage: UNK, UNKNOWN FREQ.
     Route: 065
     Dates: start: 201403
  2. REGADENOSON [Suspect]
     Active Substance: REGADENOSON
     Indication: SCAN MYOCARDIAL PERFUSION
     Dosage: UNK, UNKNOWN FREQ.
     Route: 065
     Dates: start: 201403

REACTIONS (4)
  - Swelling face [Unknown]
  - Abdominal distension [Unknown]
  - Erythema [Unknown]
  - Generalised erythema [Unknown]
